FAERS Safety Report 4578384-3 (Version None)
Quarter: 2005Q1

REPORT INFORMATION
  Report Type: 
  Country: None (occurrence: None)
  Receive Date: 20050211
  Receipt Date: 20050202
  Transmission Date: 20050727
  Serious: Yes (Hospitalization)
  Sender: FDA-Public Use
  Company Number: GB-BRISTOL-MYERS SQUIBB COMPANY-12845921

PATIENT
  Age: 70 Year
  Sex: Female

DRUGS (2)
  1. CISPLATIN [Suspect]
     Indication: ENDOMETRIAL CANCER
     Route: 042
     Dates: start: 20050105, end: 20050105
  2. ADRIAMYCIN PFS [Suspect]
     Indication: ENDOMETRIAL CANCER
     Route: 042
     Dates: start: 20050105, end: 20050105

REACTIONS (6)
  - CHEST WALL PAIN [None]
  - CONSTIPATION [None]
  - DECREASED APPETITE [None]
  - HAEMOGLOBIN DECREASED [None]
  - NAUSEA [None]
  - VOMITING [None]
